FAERS Safety Report 15539221 (Version 1)
Quarter: 2018Q4

REPORT INFORMATION
  Report Type: Spontaneous
  Country: US (occurrence: US)
  Receive Date: 20181022
  Receipt Date: 20181022
  Transmission Date: 20190205
  Serious: No
  Sender: FDA-Public Use
  Company Number: US-ROMARKLABS-2018-US-000069

PATIENT
  Age: 44 Year
  Sex: Female

DRUGS (2)
  1. ALINIA [Suspect]
     Active Substance: NITAZOXANIDE
     Indication: PRODUCT USED FOR UNKNOWN INDICATION
     Dosage: 1 TABLET TWICE DAILY
     Route: 048
     Dates: start: 20180118, end: 20180121
  2. ENTERAGAM [Concomitant]
     Active Substance: DIETARY SUPPLEMENT
     Indication: PRODUCT USED FOR UNKNOWN INDICATION
     Route: 048

REACTIONS (2)
  - Rash pruritic [Unknown]
  - Muscle spasms [Unknown]

NARRATIVE: CASE EVENT DATE: 201801
